FAERS Safety Report 10298915 (Version 2)
Quarter: 2014Q3

REPORT INFORMATION
  Report Type: Spontaneous
  Country: US (occurrence: US)
  Receive Date: 20140711
  Receipt Date: 20140711
  Transmission Date: 20150326
  Serious: No
  Sender: FDA-Public Use
  Company Number: US-GILEAD-2013-0081285

PATIENT
  Sex: Male

DRUGS (15)
  1. OMEPRAZOLE. [Concomitant]
     Active Substance: OMEPRAZOLE
  2. LETAIRIS [Suspect]
     Active Substance: AMBRISENTAN
     Indication: PULMONARY ARTERIAL HYPERTENSION
     Dosage: 10 MG, QD
     Route: 048
     Dates: start: 20110413
  3. DIGOXIN. [Concomitant]
     Active Substance: DIGOXIN
  4. CARVEDILOL. [Concomitant]
     Active Substance: CARVEDILOL
  5. COLACE [Concomitant]
     Active Substance: DOCUSATE SODIUM
  6. METAMUCIL [Concomitant]
     Active Substance: PLANTAGO SEED
  7. GLIPIZIDE. [Concomitant]
     Active Substance: GLIPIZIDE
  8. LACTULOSE. [Concomitant]
     Active Substance: LACTULOSE
  9. BENAZEPRIL [Concomitant]
     Active Substance: BENAZEPRIL\BENAZEPRIL HYDROCHLORIDE
  10. LASIX [Concomitant]
     Active Substance: FUROSEMIDE
  11. ALLOPURINOL. [Concomitant]
     Active Substance: ALLOPURINOL
  12. LETAIRIS [Suspect]
     Active Substance: AMBRISENTAN
     Indication: HEPATIC CIRRHOSIS
  13. SILDENAFIL [Concomitant]
     Active Substance: SILDENAFIL
  14. FERROUS SULFATE [Concomitant]
     Active Substance: FERROUS SULFATE\FERROUS SULFATE, DRIED
  15. COLCHICINE. [Concomitant]
     Active Substance: COLCHICINE

REACTIONS (1)
  - Liver disorder [Unknown]
